FAERS Safety Report 5740509-1 (Version None)
Quarter: 2008Q2

REPORT INFORMATION
  Report Type: 
  Country: None (occurrence: None)
  Receive Date: 20080513
  Receipt Date: 20080505
  Transmission Date: 20081010
  Serious: No
  Sender: FDA-Public Use
  Company Number: APP200800350

PATIENT
  Age: 80 Year
  Sex: Male
  Weight: 143 kg

DRUGS (2)
  1. HEPARIN SODIUM INJECTION [Suspect]
     Indication: DRUG USE FOR UNKNOWN INDICATION
     Dosage: SEE IMAGE
     Route: 040
     Dates: start: 20080416, end: 20080416
  2. HEPARIN SODIUM INJECTION [Suspect]
     Indication: DRUG USE FOR UNKNOWN INDICATION
     Dosage: SEE IMAGE
     Route: 040
     Dates: start: 20080416, end: 20080416

REACTIONS (2)
  - COAGULATION TIME SHORTENED [None]
  - DRUG INEFFECTIVE [None]
